FAERS Safety Report 18669422 (Version 3)
Quarter: 2023Q1

REPORT INFORMATION
  Report Type: Spontaneous
  Country: PL (occurrence: PL)
  Receive Date: 20201228
  Receipt Date: 20230224
  Transmission Date: 20230418
  Serious: Yes (Hospitalization)
  Sender: FDA-Public Use
  Company Number: None

PATIENT
  Age: 35 Year
  Sex: Male

DRUGS (18)
  1. CYCLOSPORINE [Interacting]
     Active Substance: CYCLOSPORINE
     Indication: Toxic epidermal necrolysis
     Dosage: 200 MG, QD
     Route: 065
     Dates: start: 20180629, end: 20180703
  2. LAMOTRIGINE [Concomitant]
     Active Substance: LAMOTRIGINE
     Indication: Bipolar disorder
     Dosage: UNK
     Route: 065
     Dates: start: 201804, end: 201807
  3. AUGMENTIN [Concomitant]
     Active Substance: AMOXICILLIN\CLAVULANATE POTASSIUM
     Indication: Upper respiratory tract infection
     Dosage: 3 DOSAGE FORM
     Route: 065
     Dates: start: 20180622
  4. AUGMENTIN [Concomitant]
     Active Substance: AMOXICILLIN\CLAVULANATE POTASSIUM
     Indication: Oropharyngeal pain
  5. AUGMENTIN [Concomitant]
     Active Substance: AMOXICILLIN\CLAVULANATE POTASSIUM
     Indication: Pyrexia
  6. AUGMENTIN [Concomitant]
     Active Substance: AMOXICILLIN\CLAVULANATE POTASSIUM
     Indication: Myalgia
  7. AUGMENTIN [Concomitant]
     Active Substance: AMOXICILLIN\CLAVULANATE POTASSIUM
     Indication: Lymphadenopathy
  8. NAPROXEN [Concomitant]
     Active Substance: NAPROXEN
     Indication: Upper respiratory tract infection
     Dosage: UNK
     Route: 065
     Dates: start: 20180622
  9. NAPROXEN [Concomitant]
     Active Substance: NAPROXEN
     Indication: Pyrexia
  10. NAPROXEN [Concomitant]
     Active Substance: NAPROXEN
     Indication: Myalgia
  11. NAPROXEN [Concomitant]
     Active Substance: NAPROXEN
     Indication: Lymphadenopathy
  12. NAPROXEN [Concomitant]
     Active Substance: NAPROXEN
     Indication: Oropharyngeal pain
  13. DEXAMETHASONE [Concomitant]
     Active Substance: DEXAMETHASONE
     Indication: Skin lesion
     Dosage: UNK, BID
     Route: 061
  14. POTASSIUM PERMANGANATE [Concomitant]
     Active Substance: POTASSIUM PERMANGANATE
     Indication: Skin lesion
     Dosage: UNK, BID
     Route: 061
  15. FLUOXETINE HYDROCHLORIDE [Concomitant]
     Active Substance: FLUOXETINE HYDROCHLORIDE
     Indication: Bipolar disorder
     Dosage: UNK
     Route: 065
  16. MINERAL OIL [Concomitant]
     Active Substance: MINERAL OIL
     Indication: Skin lesion
     Dosage: UNK, BID
     Route: 061
  17. DEXAMETHASONE [Concomitant]
     Active Substance: DEXAMETHASONE
     Indication: Product used for unknown indication
     Dosage: 8 MG, QD
     Route: 042
     Dates: start: 20180629, end: 20180709
  18. DEXAMETHASONE [Concomitant]
     Active Substance: DEXAMETHASONE
     Indication: Product used for unknown indication
     Dosage: UNK
     Route: 065

REACTIONS (3)
  - Toxic epidermal necrolysis [Unknown]
  - Condition aggravated [Unknown]
  - Product use in unapproved indication [Unknown]

NARRATIVE: CASE EVENT DATE: 20180601
